FAERS Safety Report 5044511-7 (Version None)
Quarter: 2006Q2

REPORT INFORMATION
  Report Type: 
  Country: None (occurrence: None)
  Receive Date: 20060601
  Receipt Date: 20060327
  Transmission Date: 20061013
  Serious: No
  Sender: FDA-Public Use
  Company Number: US200603006516

PATIENT
  Sex: Male

DRUGS (4)
  1. CYMBALTA [Suspect]
     Indication: CONNECTIVE TISSUE DISORDER
     Dosage: 30 MG, DAILY (1/D)
     Dates: start: 20060301, end: 20060301
  2. TRICOR [Concomitant]
  3. ACETAMINOPHEN [Concomitant]
  4. ASPIRIN [Concomitant]

REACTIONS (2)
  - DEPRESSION [None]
  - HEADACHE [None]
